FAERS Safety Report 4462096-0 (Version None)
Quarter: 2004Q3

REPORT INFORMATION
  Report Type: 
  Country: None (occurrence: None)
  Receive Date: 20040929
  Receipt Date: 20040920
  Transmission Date: 20050211
  Serious: Yes (Hospitalization)
  Sender: FDA-Public Use
  Company Number: ES-ABBOTT-04P-144-0273870-00

PATIENT
  Sex: Male

DRUGS (2)
  1. KALETRA [Suspect]
     Indication: HIV INFECTION
     Route: 048
     Dates: start: 20030314
  2. ZIDOVUDINE W/LAMIVUDINE [Concomitant]
     Indication: HIV INFECTION
     Route: 048
     Dates: start: 20030301

REACTIONS (4)
  - CENTRAL NERVOUS SYSTEM LESION [None]
  - HEMIANOPIA HOMONYMOUS [None]
  - HEPATOMEGALY [None]
  - SPLENOMEGALY [None]
